FAERS Safety Report 6456614-0 (Version None)
Quarter: 2009Q4

REPORT INFORMATION
  Report Type: 
  Country: None (occurrence: None)
  Receive Date: 20091120
  Receipt Date: 20091106
  Transmission Date: 20100525
  Serious: Yes (Hospitalization)
  Sender: FDA-Public Use
  Company Number: SPV1-2009-02229

PATIENT
  Age: 11 Year
  Sex: Male
  Weight: 36.3 kg

DRUGS (4)
  1. INTUNIV [Suspect]
     Indication: ATTENTION DEFICIT/HYPERACTIVITY DISORDER
     Dosage: 1 MG, 1X/DAY:QD, ORAL, 2 MG, 1X/DAY:QD, ORAL, 3 MG, 1X/DAY:QD, ORAL
     Route: 048
     Dates: start: 20091031, end: 20091106
  2. INTUNIV [Suspect]
     Indication: ATTENTION DEFICIT/HYPERACTIVITY DISORDER
     Dosage: 1 MG, 1X/DAY:QD, ORAL, 2 MG, 1X/DAY:QD, ORAL, 3 MG, 1X/DAY:QD, ORAL
     Route: 048
     Dates: start: 20091107, end: 20091108
  3. INTUNIV [Suspect]
     Indication: ATTENTION DEFICIT/HYPERACTIVITY DISORDER
     Dosage: 1 MG, 1X/DAY:QD, ORAL, 2 MG, 1X/DAY:QD, ORAL, 3 MG, 1X/DAY:QD, ORAL
     Route: 048
     Dates: start: 20091109
  4. VYVANSE  (LISDEXAMFETAMINE MESILATE) CAPSULE [Concomitant]

REACTIONS (5)
  - AGGRESSION [None]
  - FAMILY STRESS [None]
  - IMPULSIVE BEHAVIOUR [None]
  - INAPPROPRIATE SCHEDULE OF DRUG ADMINISTRATION [None]
  - NEGATIVISM [None]
